FAERS Safety Report 16023857 (Version 1)
Quarter: 2019Q1

REPORT INFORMATION
  Report Type: Spontaneous
  Country: FR (occurrence: FR)
  Receive Date: 20190301
  Receipt Date: 20190301
  Transmission Date: 20190418
  Serious: Yes (Death)
  Sender: FDA-Public Use
  Company Number: FR-PFIZER INC-2019086091

PATIENT
  Age: 82 Year
  Sex: Male
  Weight: 101 kg

DRUGS (14)
  1. UVEDOSE [Suspect]
     Active Substance: CHOLECALCIFEROL
     Indication: VITAMIN D DEFICIENCY
     Dosage: UNK
     Route: 048
     Dates: end: 20180222
  2. GLUCOPHAGE [Suspect]
     Active Substance: METFORMIN HYDROCHLORIDE
     Indication: TYPE 2 DIABETES MELLITUS
     Dosage: 2 DF, 1X/DAY
     Route: 048
     Dates: end: 20180222
  3. INNOHEP [Suspect]
     Active Substance: TINZAPARIN SODIUM
     Indication: ATRIAL FIBRILLATION
     Dosage: 16000 IU, 1X/DAY
     Route: 058
     Dates: start: 20180215, end: 20180222
  4. TIAPRIDAL [Suspect]
     Active Substance: TIAPRIDE HYDROCHLORIDE
     Dosage: 1 DF, 1X/DAY
     Route: 048
     Dates: end: 20180222
  5. LAMALINE [ATROPA BELLADONNA EXTRACT;CAFFEINE;PAPAVER SOMNIFERUM TINCTU [Suspect]
     Active Substance: ACETAMINOPHEN\BELLADONNA LEAF\CAFFEINE\OPIUM
     Indication: PAIN
     Dosage: 3 DF, 1X/DAY
     Route: 048
     Dates: end: 20180222
  6. SERETIDE [Suspect]
     Active Substance: FLUTICASONE PROPIONATE\SALMETEROL XINAFOATE
     Indication: CHRONIC OBSTRUCTIVE PULMONARY DISEASE
     Dosage: 2 DF, 1X/DAY
     Route: 055
     Dates: end: 20180222
  7. TAHOR [Suspect]
     Active Substance: ATORVASTATIN CALCIUM
     Indication: HYPERCHOLESTEROLAEMIA
     Dosage: 1 DF, 1X/DAY
     Route: 048
     Dates: end: 20180222
  8. INEXIUM [ESOMEPRAZOLE MAGNESIUM] [Suspect]
     Active Substance: ESOMEPRAZOLE MAGNESIUM
     Indication: GASTROOESOPHAGEAL REFLUX DISEASE
     Dosage: UNK
     Route: 048
     Dates: end: 20180222
  9. AERIUS (DESLORATADINE) [Suspect]
     Active Substance: DESLORATADINE
     Dosage: 1 DF, 1X/DAY
     Route: 048
     Dates: end: 20180222
  10. TRANSIPEG [MACROGOL] [Suspect]
     Active Substance: POLYETHYLENE GLYCOLS
     Indication: CONSTIPATION
     Dosage: 1 DF, 1X/DAY
     Route: 048
     Dates: end: 20180222
  11. ELUDRIL (CHLORHEXIDINE GLUCONATE) [Suspect]
     Active Substance: CHLORHEXIDINE GLUCONATE
     Indication: ORAL DISORDER
     Dosage: 2 DF, 1X/DAY
     Route: 048
     Dates: end: 20180222
  12. LOPERAMIDE [LOPERAMIDE HYDROCHLORIDE] [Suspect]
     Active Substance: LOPERAMIDE HYDROCHLORIDE
     Dosage: 2 MG, UNK
     Route: 048
     Dates: end: 20180222
  13. SPIRIVA [Suspect]
     Active Substance: TIOTROPIUM BROMIDE MONOHYDRATE
     Indication: CHRONIC OBSTRUCTIVE PULMONARY DISEASE
     Dosage: 2 DF, 1X/DAY
     Route: 048
     Dates: end: 20180222
  14. DOLIPRANE [Suspect]
     Active Substance: ACETAMINOPHEN
     Indication: PAIN
     Dosage: 3 DF, 1X/DAY
     Route: 048
     Dates: end: 20180222

REACTIONS (3)
  - Hepatic haematoma [Fatal]
  - Anaemia [Fatal]
  - Respiratory distress [Fatal]

NARRATIVE: CASE EVENT DATE: 20180222
